FAERS Safety Report 23130265 (Version 1)
Quarter: 2023Q4

REPORT INFORMATION
  Report Type: Spontaneous
  Country: US (occurrence: US)
  Receive Date: 20231031
  Receipt Date: 20231031
  Transmission Date: 20240110
  Serious: Yes (Other)
  Sender: FDA-Public Use
  Company Number: US-ORGANON-O2310USA002994

PATIENT
  Age: 76 Year
  Sex: Female

DRUGS (4)
  1. SINEMET [Suspect]
     Active Substance: CARBIDOPA\LEVODOPA
     Indication: Parkinson^s disease
     Dosage: UNK, QD
     Route: 048
  2. ONGENTYS [Suspect]
     Active Substance: OPICAPONE
     Indication: Parkinson^s disease
     Dosage: 50 MILLIGRAM, ONE DAILY (QD)
     Dates: start: 20230905, end: 20230926
  3. ENTACAPONE [Suspect]
     Active Substance: ENTACAPONE
     Indication: Parkinson^s disease
     Dosage: UNK
  4. INGREZZA [Suspect]
     Active Substance: VALBENAZINE
     Dosage: UNK
     Dates: end: 20230926

REACTIONS (6)
  - Tardive dyskinesia [Recovering/Resolving]
  - Mania [Recovered/Resolved]
  - Dyslexia [Recovered/Resolved]
  - Hypermetabolism [Recovered/Resolved]
  - Weight decreased [Recovered/Resolved]
  - Euphoric mood [Recovered/Resolved]

NARRATIVE: CASE EVENT DATE: 20230905
